FAERS Safety Report 16867934 (Version 2)
Quarter: 2019Q4

REPORT INFORMATION
  Report Type: Report from Study
  Country: TW (occurrence: TW)
  Receive Date: 20190930
  Receipt Date: 20191018
  Transmission Date: 20200122
  Serious: Yes (Death, Other)
  Sender: FDA-Public Use
  Company Number: TW-GILEAD-2019-0430603

PATIENT
  Age: 73 Year
  Sex: Male
  Weight: 53 kg

DRUGS (7)
  1. CLOPIDOGREL [Concomitant]
     Active Substance: CLOPIDOGREL BISULFATE
  2. FLUNITRAZEPAM [Concomitant]
     Active Substance: FLUNITRAZEPAM
  3. WARFARIN [Concomitant]
     Active Substance: WARFARIN
  4. TRAZODONE [Concomitant]
     Active Substance: TRAZODONE HYDROCHLORIDE
  5. SOFOSBUVIR W/VELPATASVIR [Suspect]
     Active Substance: SOFOSBUVIR\VELPATASVIR
     Indication: CHRONIC HEPATITIS C
     Dosage: 1 DOSAGE FORM
     Route: 048
     Dates: start: 20190619, end: 20190910
  6. ATORVASTATIN [Concomitant]
     Active Substance: ATORVASTATIN
  7. ULTRACET [Concomitant]
     Active Substance: ACETAMINOPHEN\TRAMADOL HYDROCHLORIDE

REACTIONS (2)
  - Intestinal ischaemia [Fatal]
  - Sepsis [Fatal]
